FAERS Safety Report 5613044-9 (Version None)
Quarter: 2008Q1

REPORT INFORMATION
  Report Type: 
  Country: None (occurrence: None)
  Receive Date: 20080204
  Receipt Date: 20080123
  Transmission Date: 20080703
  Serious: Yes (Other)
  Sender: FDA-Public Use
  Company Number: US-PFIZER INC-2008007634

PATIENT
  Sex: Female

DRUGS (1)
  1. DEPO-PROVERA SUSPENSION/INJ [Suspect]
     Indication: CONTRACEPTION
     Dosage: FREQ:LAST INJECTION
     Dates: start: 20070801, end: 20070801

REACTIONS (3)
  - AMENORRHOEA [None]
  - TUNNEL VISION [None]
  - VISION BLURRED [None]
